FAERS Safety Report 25713402 (Version 1)
Quarter: 2025Q3

REPORT INFORMATION
  Report Type: Spontaneous
  Country: CN (occurrence: CN)
  Receive Date: 20250822
  Receipt Date: 20250822
  Transmission Date: 20251021
  Serious: Yes (Other)
  Sender: BEIGENE
  Company Number: CN-BEIGENE-BGN-2025-013829

PATIENT
  Age: 69 Year
  Weight: 60 kg

DRUGS (3)
  1. TISLELIZUMAB [Suspect]
     Active Substance: TISLELIZUMAB
     Indication: Small cell lung cancer
  2. ETOPOSIDE [Suspect]
     Active Substance: ETOPOSIDE
     Indication: Small cell lung cancer
  3. NEDAPLATIN [Suspect]
     Active Substance: NEDAPLATIN
     Indication: Small cell lung cancer

REACTIONS (1)
  - Myelosuppression [Unknown]
